FAERS Safety Report 5265447-2 (Version None)
Quarter: 2007Q1

REPORT INFORMATION
  Report Type: 
  Country: None (occurrence: None)
  Receive Date: 20061213
  Receipt Date: 20040921
  Transmission Date: 20070707
  Serious: Yes (Other)
  Sender: FDA-Public Use
  Company Number: 2004UW19698

PATIENT
  Age: 86 Year
  Sex: Female
  Weight: 78.9259 kg

DRUGS (9)
  1. IRESSA [Suspect]
     Indication: NON-SMALL CELL LUNG CANCER
     Dosage: 125 MG PO
     Route: 048
  2. EPOGEN [Concomitant]
  3. CARDIZEM [Concomitant]
  4. TYLENOL W/ CODEINE [Concomitant]
  5. NITROGLYCERIN [Concomitant]
  6. SYNTHROID [Concomitant]
  7. TOPROL-XL [Concomitant]
  8. PROTONIX [Concomitant]
  9. ZOCOR [Concomitant]

REACTIONS (2)
  - RASH [None]
  - SKIN ULCER [None]
